FAERS Safety Report 8463707-5 (Version None)
Quarter: 2012Q2

REPORT INFORMATION
  Report Type: 
  Country: None (occurrence: None)
  Receive Date: 20120625
  Receipt Date: 20120615
  Transmission Date: 20120825
  Serious: Yes (Hospitalization)
  Sender: FDA-Public Use
  Company Number: GB-ABBOTT-12P-167-0916654-00

PATIENT
  Sex: Male
  Weight: 94 kg

DRUGS (5)
  1. THIAMINE HCL [Concomitant]
     Indication: PRODUCT USED FOR UNKNOWN INDICATION
     Dosage: LONG TERM, TID
     Route: 048
  2. HUMIRA [Suspect]
     Indication: RHEUMATOID ARTHRITIS
     Route: 058
     Dates: start: 20090901
  3. FERROUS FUMARATE [Concomitant]
     Indication: BLOOD IRON DECREASED
     Dosage: LONG TERM, TID
  4. MIRTAZAPINE [Concomitant]
     Indication: DEPRESSED MOOD
     Dosage: NOCTE LONG TERM
     Route: 048
  5. VITAMIN B COMPOUND [Concomitant]
     Indication: PRODUCT USED FOR UNKNOWN INDICATION
     Dosage: LONG TERM, BID
     Route: 048

REACTIONS (2)
  - DERMATITIS EXFOLIATIVE [None]
  - ECZEMA [None]
